FAERS Safety Report 8077134-6 (Version None)
Quarter: 2012Q1

REPORT INFORMATION
  Report Type: 
  Country: None (occurrence: None)
  Receive Date: 20120127
  Receipt Date: 20120124
  Transmission Date: 20120608
  Serious: Yes (Death, Hospitalization, Other)
  Sender: FDA-Public Use
  Company Number: PHHY2010US88632

PATIENT
  Sex: Female

DRUGS (9)
  1. LOVAZA [Concomitant]
     Dates: start: 20110301, end: 20110401
  2. CRANBERRY PILLS [Concomitant]
     Dosage: UNK UKN, OT
  3. ABILIFY [Concomitant]
     Dosage: 2.5 MG, UNK
     Dates: start: 20091101
  4. SIMVASTATIN [Concomitant]
     Dates: start: 20101001, end: 20110301
  5. TYLENOL PM [Concomitant]
     Dates: start: 20050101, end: 20110401
  6. VITAMIN D [Concomitant]
     Dosage: 50000 IU, QW
     Dates: start: 20100801, end: 20110401
  7. GILENYA [Suspect]
     Dosage: 0.5 MG, QD
  8. GILENYA [Suspect]
     Indication: MULTIPLE SCLEROSIS
     Dosage: 0.5 MG, QD
     Route: 048
     Dates: start: 20101215
  9. CYMBALTA [Concomitant]
     Dosage: 120 MG, UNK
     Dates: start: 20051101

REACTIONS (8)
  - MULTIPLE SCLEROSIS [None]
  - DYSPHAGIA [None]
  - HYPERTENSION [None]
  - CONFUSIONAL STATE [None]
  - DEEP VEIN THROMBOSIS [None]
  - DYSARTHRIA [None]
  - CEREBROVASCULAR ACCIDENT [None]
  - URINARY TRACT INFECTION [None]
